FAERS Safety Report 6690197-5 (Version None)
Quarter: 2010Q2

REPORT INFORMATION
  Report Type: 
  Country: None (occurrence: None)
  Receive Date: 20100412
  Receipt Date: 20091215
  Transmission Date: 20101027
  Serious: No
  Sender: FDA-Public Use
  Company Number: 1000010812

PATIENT
  Age: 66 Year
  Sex: Female

DRUGS (9)
  1. BYSTOLIC [Suspect]
     Indication: HYPERTENSION
     Dosage: 5 MG (5 MG, 1 IN 1 D), ORAL, 10 MG (10 MG, 1 IN 1 D), ORAL
     Route: 048
     Dates: start: 20091203, end: 20091206
  2. BYSTOLIC [Suspect]
     Indication: HYPERTENSION
     Dosage: 5 MG (5 MG, 1 IN 1 D), ORAL, 10 MG (10 MG, 1 IN 1 D), ORAL
     Route: 048
     Dates: start: 20091207
  3. PROTONIX (40 MILLIGRAM) [Concomitant]
  4. FISH OIL [Concomitant]
  5. HYOSCYAMINE (0.125 MILLIGRAM, CAPSULES) [Concomitant]
  6. XANAX [Concomitant]
  7. CALCIUM [Concomitant]
  8. IRON [Concomitant]
  9. MULTI-VITAMIN [Concomitant]

REACTIONS (4)
  - DIZZINESS [None]
  - DYSARTHRIA [None]
  - HEADACHE [None]
  - NAUSEA [None]
